FAERS Safety Report 7233516-3 (Version None)
Quarter: 2011Q1

REPORT INFORMATION
  Report Type: 
  Country: None (occurrence: None)
  Receive Date: 20110113
  Receipt Date: 20110113
  Transmission Date: 20110831
  Serious: Yes (Hospitalization)
  Sender: FDA-Public Use
  Company Number: None

PATIENT
  Sex: Female
  Weight: 48 kg

DRUGS (7)
  1. PREVACID [Concomitant]
  2. REGLAN [Concomitant]
  3. COLACE [Concomitant]
  4. COMPAZINE [Concomitant]
  5. KYTRIL [Concomitant]
  6. SUNIITINIB [Suspect]
     Indication: RENAL CANCER METASTATIC
     Dosage: 50MG ONCE DAILY
     Dates: start: 20101110
  7. OXYCODONE HCL [Concomitant]

REACTIONS (2)
  - SUPRAPUBIC PAIN [None]
  - URINARY TRACT INFECTION [None]
